FAERS Safety Report 8784825 (Version 2)
Quarter: 2012Q4

REPORT INFORMATION
  Report Type: Report from Study
  Country: JP (occurrence: JP)
  Receive Date: 20120914
  Receipt Date: 20121212
  Transmission Date: 20130627
  Serious: Yes (Other)
  Sender: FDA-Public Use
  Company Number: JP-CELGENEUS-087-21660-12082960

PATIENT
  Age: 68 Year
  Sex: Female
  Weight: 57 kg

DRUGS (18)
  1. ABRAXANE [Suspect]
     Indication: BREAST CANCER METASTATIC
     Dosage: 230 Milligram
     Route: 041
     Dates: start: 20101127
  2. ABRAXANE [Suspect]
     Dosage: 230 Milligram
     Route: 041
     Dates: start: 20120615, end: 20120803
  3. ZOMETA [Concomitant]
     Indication: BREAST CANCER METASTATIC
     Dosage: 4 Milligram
     Route: 065
     Dates: start: 20100903
  4. VOLTAREN [Concomitant]
     Indication: TUMOR PAIN
     Route: 041
     Dates: start: 20101101
  5. LOXONIN [Concomitant]
     Indication: TUMOR PAIN
     Dosage: 3 Tablet
     Route: 048
     Dates: start: 20101101
  6. MUCOSTA [Concomitant]
     Indication: GASTRITIS PROPHYLAXIS
     Dosage: 3 Tablet
     Route: 048
     Dates: start: 20101101
  7. AZUNOL GARGLE LIQUID [Concomitant]
     Indication: INFECTION PROPHYLAXIS
     Route: 048
     Dates: start: 20101115
  8. METHYCOBAL [Concomitant]
     Indication: SENSORY DISTURBANCE
     Dosage: 3 Tablet
     Route: 048
     Dates: start: 20110117
  9. METHYCOBAL [Concomitant]
     Indication: BELL^S PALSY
  10. MOHRUS [Concomitant]
     Indication: TUMOR PAIN
     Route: 065
     Dates: start: 20110218
  11. LASIX [Concomitant]
     Indication: OEDEMA
     Route: 048
     Dates: start: 20110930
  12. ALDACTONE [Concomitant]
     Indication: OEDEMA
     Route: 048
     Dates: start: 20110930
  13. GOSHANJINKIGAN [Concomitant]
     Indication: SENSORY DISTURBANCE
     Route: 048
     Dates: start: 20111031
  14. TARIVID [Concomitant]
     Indication: LACRIMATION
     Route: 065
     Dates: start: 20111107
  15. FLOMOX [Concomitant]
     Indication: INFECTION PROPHYLAXIS
     Route: 048
     Dates: start: 20120323
  16. HIRUDOID [Concomitant]
     Indication: PROPHYLAXIS
     Route: 065
     Dates: start: 20120323
  17. L-GLUTAMINE [Concomitant]
     Indication: GASTRITIS PROPHYLAXIS
     Route: 048
     Dates: start: 20120518
  18. LYRICA [Concomitant]
     Indication: SENSORY DISTURBANCE
     Route: 048
     Dates: start: 20120525

REACTIONS (1)
  - Macular oedema [Not Recovered/Not Resolved]
